FAERS Safety Report 14517821 (Version 1)
Quarter: 2018Q1

REPORT INFORMATION
  Report Type: Spontaneous
  Country: US (occurrence: US)
  Receive Date: 20180212
  Receipt Date: 20180212
  Transmission Date: 20180509
  Serious: No
  Sender: FDA-Public Use
  Company Number: US-PFIZER INC-2018056951

PATIENT
  Age: 28 Year
  Sex: Male
  Weight: 95 kg

DRUGS (9)
  1. TESTOSTERONE. [Suspect]
     Active Substance: TESTOSTERONE
     Indication: HYPOPITUITARISM
     Dosage: 200MG INJECTION ONCE A WEEK
     Dates: start: 2013
  2. HYDROCORTISONE. [Suspect]
     Active Substance: HYDROCORTISONE
     Indication: ADRENAL INSUFFICIENCY
     Dosage: 10MG, TWO TABLETS THREE TIMES A DAY
     Route: 048
     Dates: start: 2013
  3. HYDROCORTISONE. [Suspect]
     Active Substance: HYDROCORTISONE
     Indication: HYPOPITUITARISM
  4. LIOTHYRONINE [Suspect]
     Active Substance: LIOTHYRONINE
     Indication: THYROID DISORDER
     Dosage: 25 UG, 1X/DAY
     Route: 048
     Dates: start: 2013
  5. DECADRON [Suspect]
     Active Substance: DEXAMETHASONE
     Indication: HYPOPITUITARISM
  6. FLUDROCORTISONE [Suspect]
     Active Substance: FLUDROCORTISONE
     Indication: ADRENAL INSUFFICIENCY
     Dosage: 0.1 MG, 1X/DAY
     Route: 048
     Dates: start: 2013
  7. PREDNISONE. [Suspect]
     Active Substance: PREDNISONE
     Indication: ADRENAL INSUFFICIENCY
     Dosage: 5ML/5ML, 1.5 TEASPOONS EVERY MORNING AND 0.5 TEASPOONS IN THE AFTERNOON
     Route: 048
  8. FLUDROCORTISONE [Suspect]
     Active Substance: FLUDROCORTISONE
     Indication: HYPOPITUITARISM
  9. DECADRON [Suspect]
     Active Substance: DEXAMETHASONE
     Indication: ADRENAL INSUFFICIENCY
     Dosage: 1MG, 1-2 TABLETS AS NEED BY MOUTH
     Route: 048
     Dates: start: 20180123

REACTIONS (1)
  - Drug ineffective [Unknown]

NARRATIVE: CASE EVENT DATE: 201801
